FAERS Safety Report 4554631-9 (Version None)
Quarter: 2005Q1

REPORT INFORMATION
  Report Type: 
  Country: None (occurrence: None)
  Receive Date: 20041228
  Receipt Date: 20041115
  Transmission Date: 20050727
  Serious: No
  Sender: FDA-Public Use
  Company Number: IND-AE-04-SAN-017

PATIENT
  Age: 82 Year
  Sex: Female
  Weight: 70.7611 kg

DRUGS (4)
  1. SANCTURA [Suspect]
     Indication: HYPERTONIC BLADDER
     Dosage: 20 MG-BID-ORAL
     Route: 048
     Dates: start: 20040922, end: 20041009
  2. PROZAC [Concomitant]
  3. SYNTHROID [Concomitant]
  4. FELODIPINE [Concomitant]

REACTIONS (4)
  - ABDOMINAL PAIN [None]
  - ASTHENIA [None]
  - HEADACHE [None]
  - URINARY TRACT INFECTION [None]
